FAERS Safety Report 14094038 (Version 2)
Quarter: 2017Q4

REPORT INFORMATION
  Report Type: Report from Study
  Country: US (occurrence: US)
  Receive Date: 20171016
  Receipt Date: 20171102
  Transmission Date: 20180321
  Serious: Yes (Hospitalization)
  Sender: FDA-Public Use
  Company Number: US-JNJFOC-20171014522

PATIENT
  Sex: Male

DRUGS (19)
  1. IMBRUVICA [Suspect]
     Active Substance: IBRUTINIB
     Indication: CHRONIC LYMPHOCYTIC LEUKAEMIA
     Route: 048
     Dates: start: 20170720, end: 20171027
  2. CHOLECALCIFEROL [Concomitant]
     Active Substance: CHOLECALCIFEROL
  3. TAMSULOSIN [Concomitant]
     Active Substance: TAMSULOSIN
  4. LIDOCAINE. [Concomitant]
     Active Substance: LIDOCAINE
  5. VENTOLIN HFA [Concomitant]
     Active Substance: ALBUTEROL SULFATE
     Dosage: 90 BASE
  6. LYRICA [Concomitant]
     Active Substance: PREGABALIN
  7. FLUTICASONE. [Concomitant]
     Active Substance: FLUTICASONE
     Dosage: 50 MCG/ACT
  8. ASPIRIN. [Concomitant]
     Active Substance: ASPIRIN
  9. FERROUS SULFATE. [Concomitant]
     Active Substance: FERROUS SULFATE
  10. FINASTERIDE. [Concomitant]
     Active Substance: FINASTERIDE
  11. XYREM [Concomitant]
     Active Substance: SODIUM OXYBATE
  12. DULOXETINE. [Concomitant]
     Active Substance: DULOXETINE
  13. MEMANTINE. [Concomitant]
     Active Substance: MEMANTINE
  14. CALCIUM CARBONATE. [Concomitant]
     Active Substance: CALCIUM CARBONATE
  15. GLIMEPIRIDE. [Concomitant]
     Active Substance: GLIMEPIRIDE
  16. HYDROXYCHLOROQUINE SULFATE. [Concomitant]
     Active Substance: HYDROXYCHLOROQUINE SULFATE
  17. LEVOTHYROXINE. [Concomitant]
     Active Substance: LEVOTHYROXINE
  18. MULTIVITAMINS [Concomitant]
     Active Substance: VITAMINS
  19. ACYCLOVIR. [Concomitant]
     Active Substance: ACYCLOVIR

REACTIONS (3)
  - Pneumonia [Unknown]
  - Disease progression [Unknown]
  - Myocardial infarction [Unknown]
